FAERS Safety Report 12566502 (Version 1)
Quarter: 2016Q3

REPORT INFORMATION
  Report Type: Report from Study
  Country: JP (occurrence: JP)
  Receive Date: 20160718
  Receipt Date: 20160718
  Transmission Date: 20161109
  Serious: Yes (Death, Other)
  Sender: FDA-Public Use
  Company Number: JP-BRISTOL-MYERS SQUIBB COMPANY-BMS-2016-057926

PATIENT
  Age: 63 Year
  Sex: Male

DRUGS (6)
  1. NIVOLUMAB [Suspect]
     Active Substance: NIVOLUMAB
     Dosage: 180 MG, Q2WK
     Route: 041
  2. NIVOLUMAB [Suspect]
     Active Substance: NIVOLUMAB
     Indication: NON-SMALL CELL LUNG CANCER
     Dosage: 180 MG, Q2WK
     Route: 041
     Dates: start: 20160301, end: 20160301
  3. NIVOLUMAB [Suspect]
     Active Substance: NIVOLUMAB
     Dosage: 180 MG, Q2WK
     Route: 041
     Dates: start: 20160607, end: 20160607
  4. NIVOLUMAB [Suspect]
     Active Substance: NIVOLUMAB
     Dosage: 180 MG, Q2WK
     Route: 041
     Dates: end: 20160301
  5. NIVOLUMAB [Suspect]
     Active Substance: NIVOLUMAB
     Dosage: 180 MG, Q2WK
     Route: 041
  6. NIVOLUMAB [Suspect]
     Active Substance: NIVOLUMAB
     Dosage: 180 MG, Q2WK
     Route: 041

REACTIONS (1)
  - Death [Fatal]
